FAERS Safety Report 6270357-8 (Version None)
Quarter: 2009Q3

REPORT INFORMATION
  Report Type: 
  Country: None (occurrence: None)
  Receive Date: 20090716
  Receipt Date: 20090708
  Transmission Date: 20100115
  Serious: Yes (Hospitalization)
  Sender: FDA-Public Use
  Company Number: B0580599A

PATIENT
  Age: 3 Day
  Sex: Male

DRUGS (1)
  1. LAMOTRIGINE [Suspect]
     Indication: EPILEPSY

REACTIONS (9)
  - CATABOLIC STATE [None]
  - FEEDING DISORDER [None]
  - GRAND MAL CONVULSION [None]
  - HYPONATRAEMIA [None]
  - METABOLIC DISORDER [None]
  - MYOCLONIC EPILEPSY [None]
  - NERVOUSNESS [None]
  - SCREAMING [None]
  - WITHDRAWAL SYNDROME [None]
